FAERS Safety Report 16517430 (Version 1)
Quarter: 2019Q3

REPORT INFORMATION
  Report Type: Spontaneous
  Country: GB (occurrence: GB)
  Receive Date: 20190702
  Receipt Date: 20190702
  Transmission Date: 20191004
  Serious: Yes (Hospitalization, Other)
  Sender: FDA-Public Use
  Company Number: GB-PFIZER INC-2019275050

PATIENT
  Age: 37 Year
  Sex: Male

DRUGS (9)
  1. PREDNISOLONE. [Concomitant]
     Active Substance: PREDNISOLONE
  2. OMEPRAZOLE. [Concomitant]
     Active Substance: OMEPRAZOLE
  3. ASPIRIN (E.C.) [Concomitant]
     Active Substance: ASPIRIN
  4. AMOXICILLIN. [Concomitant]
     Active Substance: AMOXICILLIN
  5. AZATHIOPRINE. [Concomitant]
     Active Substance: AZATHIOPRINE
  6. TACROLIMUS. [Concomitant]
     Active Substance: TACROLIMUS
  7. PREGABALIN. [Suspect]
     Active Substance: PREGABALIN
     Indication: PAIN
     Dosage: UNK
  8. GENTAMICIN. [Concomitant]
     Active Substance: GENTAMICIN
  9. CALCIUM CARBONATE W/COLECALCIFEROL [Concomitant]
     Active Substance: CALCIUM CARBONATE\CHOLECALCIFEROL

REACTIONS (6)
  - Urticaria [Unknown]
  - Neutropenia [Recovered/Resolved]
  - Lethargy [Unknown]
  - Arthralgia [Unknown]
  - Abdominal tenderness [Unknown]
  - Oropharyngeal pain [Unknown]
